FAERS Safety Report 7121800-3 (Version None)
Quarter: 2010Q4

REPORT INFORMATION
  Report Type: 
  Country: None (occurrence: None)
  Receive Date: 20101124
  Receipt Date: 20101115
  Transmission Date: 20110411
  Serious: Yes (Other)
  Sender: FDA-Public Use
  Company Number: ES-ROCHE-731948

PATIENT
  Sex: Female

DRUGS (3)
  1. HERCEPTIN [Suspect]
     Route: 065
  2. XELODA [Suspect]
     Dosage: AS SECOND LINE
     Route: 065
  3. LAPATINIB [Concomitant]

REACTIONS (1)
  - MALIGNANT NEOPLASM PROGRESSION [None]
